FAERS Safety Report 13269885 (Version 2)
Quarter: 2017Q1

REPORT INFORMATION
  Report Type: Spontaneous
  Country: IE (occurrence: IE)
  Receive Date: 20170224
  Receipt Date: 20170317
  Transmission Date: 20170428
  Serious: Yes (Other)
  Sender: FDA-Public Use
  Company Number: IE-JNJFOC-20170219474

PATIENT
  Age: 57 Year
  Sex: Male

DRUGS (13)
  1. STELARA [Suspect]
     Active Substance: USTEKINUMAB
     Indication: TEMPORAL ARTERITIS
     Route: 058
     Dates: start: 20141022
  2. PREDNISOLONE. [Concomitant]
     Active Substance: PREDNISOLONE
     Route: 065
  3. ZOTROLE [Concomitant]
     Route: 065
  4. FOLIC ACID. [Concomitant]
     Active Substance: FOLIC ACID
     Route: 065
  5. MOTILIUM [Concomitant]
     Active Substance: DOMPERIDONE
     Route: 065
  6. STELARA [Suspect]
     Active Substance: USTEKINUMAB
     Indication: TEMPORAL ARTERITIS
     Route: 058
  7. METHOTREXATE. [Concomitant]
     Active Substance: METHOTREXATE
     Route: 065
  8. CALCICHEW [Concomitant]
     Active Substance: CALCIUM CARBONATE
     Route: 065
  9. TRAMADOL. [Concomitant]
     Active Substance: TRAMADOL
     Route: 065
  10. SEPTRIN [Concomitant]
     Active Substance: SULFAMETHOXAZOLE\TRIMETHOPRIM
     Route: 065
  11. STELARA [Suspect]
     Active Substance: USTEKINUMAB
     Indication: TEMPORAL ARTERITIS
     Route: 058
     Dates: start: 20161123
  12. COZAAR [Concomitant]
     Active Substance: LOSARTAN POTASSIUM
     Route: 065
  13. NUPRIN [Concomitant]
     Active Substance: IBUPROFEN
     Route: 065

REACTIONS (3)
  - Product use issue [Unknown]
  - Cyst [Recovered/Resolved]
  - Off label use [Unknown]

NARRATIVE: CASE EVENT DATE: 20141022
